FAERS Safety Report 7978676-1 (Version None)
Quarter: 2011Q4

REPORT INFORMATION
  Report Type: 
  Country: None (occurrence: None)
  Receive Date: 20111129
  Receipt Date: 20110912
  Transmission Date: 20120403
  Serious: No
  Sender: FDA-Public Use
  Company Number: PHEH2011US01091

PATIENT
  Age: 60 Year
  Sex: Male

DRUGS (20)
  1. NABUMETONE [Concomitant]
  2. CLOMAZEPAM [Concomitant]
  3. PRAVASTATIN [Concomitant]
  4. TRILIPIX [Concomitant]
  5. TRIAMTERENE AND HYDROCHLOROTHIAZIDE [Concomitant]
  6. METOPROLOL TARTRATE [Concomitant]
  7. AFINITOR [Suspect]
     Indication: BONE NEOPLASM MALIGNANT
     Dosage: 10 MG / DAY
  8. AFINITOR [Suspect]
     Indication: RENAL CELL CARCINOMA
     Dosage: 10 MG / DAY
  9. LEVAQUIN [Concomitant]
  10. PLAVIX [Concomitant]
  11. CYCLOBENZAPER [Concomitant]
  12. SUTENT [Suspect]
     Indication: BONE NEOPLASM MALIGNANT
  13. AMLODIPINE [Concomitant]
  14. CLONIDINE [Concomitant]
  15. CYCLOBINSORP [Concomitant]
  16. ASPIRIN [Concomitant]
  17. CLONAZEPAM [Concomitant]
  18. SERTRALINE (NGX) (SERTRALINE) UNKNOWN [Suspect]
  19. PANTOPRAZOLE [Concomitant]
  20. MULTIVITAMINS (ASCORBIC ACID, ERGOCALCIFEROL, FOLIC ACID, NICOTINAMIDE [Concomitant]

REACTIONS (3)
  - OEDEMA PERIPHERAL [None]
  - CONFUSIONAL STATE [None]
  - ABNORMAL BEHAVIOUR [None]
